FAERS Safety Report 7587038-0 (Version None)
Quarter: 2011Q3

REPORT INFORMATION
  Report Type: 
  Country: None (occurrence: None)
  Receive Date: 20110701
  Receipt Date: 20110617
  Transmission Date: 20111222
  Serious: Yes (Other)
  Sender: FDA-Public Use
  Company Number: US-BAYER-201025812NA

PATIENT
  Age: 16 Year
  Sex: Female
  Weight: 53.968 kg

DRUGS (10)
  1. TUMS E-X [Concomitant]
  2. PERI-COLACE [Concomitant]
  3. ZANTAC [Concomitant]
     Indication: DYSPEPSIA
     Dosage: 300 MG (DAILY DOSE), BID,
     Dates: start: 20080101
  4. VICODIN [Concomitant]
  5. MIRALAX [Concomitant]
     Indication: CONSTIPATION
  6. AMITIZA [Concomitant]
     Indication: DYSPEPSIA
  7. YAZ [Suspect]
     Indication: CONTRACEPTION
     Route: 048
     Dates: start: 20080417, end: 20081114
  8. MIRALAX [Concomitant]
     Indication: NAUSEA
  9. RANITIDINE [Concomitant]
     Indication: GASTROOESOPHAGEAL REFLUX DISEASE
     Dates: start: 20080301, end: 20081115
  10. PRILOSEC [Concomitant]

REACTIONS (2)
  - CHOLECYSTITIS [None]
  - HEPATOBILIARY SCAN ABNORMAL [None]
